FAERS Safety Report 13628908 (Version 1)
Quarter: 2017Q2

REPORT INFORMATION
  Report Type: Spontaneous
  Country: US (occurrence: US)
  Receive Date: 20170608
  Receipt Date: 20170608
  Transmission Date: 20170830
  Serious: Yes (Other)
  Sender: FDA-Public Use
  Company Number: US-PFIZER INC-2017244304

PATIENT
  Age: 35 Year
  Sex: Female

DRUGS (11)
  1. METHOTREXATE. [Concomitant]
     Active Substance: METHOTREXATE
     Dosage: 0.8 MG/ML , WEEKLY
     Route: 058
  2. XELJANZ XR [Concomitant]
     Active Substance: TOFACITINIB CITRATE
     Indication: RHEUMATOID ARTHRITIS
     Dosage: 11 MG, DAILY (ONE TAB)
     Route: 048
  3. SINGULAIR [Concomitant]
     Active Substance: MONTELUKAST SODIUM
     Dosage: UNK
  4. SOLARAZE [Concomitant]
     Active Substance: DICLOFENAC SODIUM
     Indication: TENDONITIS
     Dosage: CREAM
     Route: 061
  5. CIMZIA [Concomitant]
     Active Substance: CERTOLIZUMAB PEGOL
     Dosage: UNK UNK, MONTHLY
     Dates: start: 20141028
  6. CELEBREX [Suspect]
     Active Substance: CELECOXIB
     Indication: TENDONITIS
     Dosage: 200 MG, AS NEEDED (ONE TAB PO BID PRN)
     Route: 048
     Dates: start: 20111230
  7. FOLIC ACID. [Concomitant]
     Active Substance: FOLIC ACID
     Dosage: 4 MG, DAILY
     Route: 048
  8. SOLARAZE [Concomitant]
     Active Substance: DICLOFENAC SODIUM
     Dosage: 3% TOPICAL GEL
     Route: 061
     Dates: start: 20150219
  9. DIAZEPAM. [Concomitant]
     Active Substance: DIAZEPAM
     Dosage: UNK
  10. VOLTAREN [Concomitant]
     Active Substance: DICLOFENAC SODIUM
     Dosage: UNK UNK, 4X/DAY (APPLY TO AFFECTED AREA)
     Route: 061
  11. VICODIN [Concomitant]
     Active Substance: ACETAMINOPHEN\HYDROCODONE BITARTRATE
     Indication: PAIN MANAGEMENT
     Dosage: UNK UNK, AS NEEDED (HYDROCODONE BITARTRATE 7.5 MG, PARACETAMOL 300 MG) (Q6H PRN)
     Route: 048

REACTIONS (14)
  - Gastric ulcer [Unknown]
  - Drug intolerance [Unknown]
  - Mouth ulceration [Recovering/Resolving]
  - Abdominal pain upper [Unknown]
  - Nausea [Unknown]
  - Arthritis [Unknown]
  - Loss of personal independence in daily activities [Unknown]
  - Flatulence [Unknown]
  - Abdominal discomfort [Unknown]
  - Pain in extremity [Unknown]
  - Muscle spasms [Unknown]
  - Myalgia [Unknown]
  - Discomfort [Unknown]
  - Musculoskeletal stiffness [Unknown]
